FAERS Safety Report 8976273 (Version 1)
Quarter: 2012Q4

REPORT INFORMATION
  Report Type: 
  Country: FR (occurrence: FR)
  Receive Date: 20121220
  Receipt Date: 20121220
  Transmission Date: 20130627
  Serious: Yes (Hospitalization)
  Sender: FDA-Public Use
  Company Number: FR-PFIZER INC-2012316708

PATIENT
  Age: 65 Year
  Sex: Male

DRUGS (3)
  1. TORISEL [Suspect]
     Indication: MANTLE CELL LYMPHOMA
     Dosage: 25 mg, weekly
     Dates: start: 201207, end: 201210
  2. AMLODIPINE [Suspect]
  3. RITUXIMAB [Concomitant]
     Indication: MANTLE CELL LYMPHOMA
     Dosage: UNK
     Dates: end: 201210

REACTIONS (3)
  - Arthritis [Recovering/Resolving]
  - Skin toxicity [Recovering/Resolving]
  - Eczema [Recovering/Resolving]
